FAERS Safety Report 9693712 (Version 1)
Quarter: 2013Q4

REPORT INFORMATION
  Report Type: Spontaneous
  Country: AU (occurrence: AU)
  Receive Date: 20131118
  Receipt Date: 20131118
  Transmission Date: 20140711
  Serious: Yes (Other)
  Sender: FDA-Public Use
  Company Number: AU-ABBVIE-13P-008-1158129-00

PATIENT
  Age: 65 Year
  Sex: Male

DRUGS (8)
  1. EPILIM [Suspect]
     Indication: PRODUCT USED FOR UNKNOWN INDICATION
  2. IRBESARTAN [Suspect]
     Indication: PRODUCT USED FOR UNKNOWN INDICATION
  3. DUROGESIC [Suspect]
     Indication: PRODUCT USED FOR UNKNOWN INDICATION
  4. ENDONE [Suspect]
     Indication: PRODUCT USED FOR UNKNOWN INDICATION
  5. NAPROSYN [Suspect]
     Indication: PRODUCT USED FOR UNKNOWN INDICATION
     Dosage: SLOW RELEASE- ROCHE
  6. DIGOXIN [Suspect]
     Indication: PRODUCT USED FOR UNKNOWN INDICATION
  7. PANDOL [Suspect]
     Indication: PRODUCT USED FOR UNKNOWN INDICATION
  8. PRAVASTATIN [Concomitant]
     Indication: PRODUCT USED FOR UNKNOWN INDICATION

REACTIONS (2)
  - Renal impairment [Unknown]
  - Blood creatinine increased [Unknown]
